FAERS Safety Report 7591925-7 (Version None)
Quarter: 2011Q3

REPORT INFORMATION
  Report Type: 
  Country: None (occurrence: None)
  Receive Date: 20110701
  Receipt Date: 20110701
  Transmission Date: 20111222
  Serious: Yes (Life-Threatening, Disabling)
  Sender: FDA-Public Use
  Company Number: None

PATIENT
  Age: 62 Year
  Sex: Male
  Weight: 83.9154 kg

DRUGS (1)
  1. GLYBURIDE [Suspect]

REACTIONS (3)
  - GLUCOSE TOLERANCE IMPAIRED [None]
  - BLOOD GLUCOSE INCREASED [None]
  - DISEASE PROGRESSION [None]
